FAERS Safety Report 11306045 (Version 1)
Quarter: 2015Q3

REPORT INFORMATION
  Report Type: Spontaneous
  Country: GB (occurrence: GB)
  Receive Date: 20150723
  Receipt Date: 20150723
  Transmission Date: 20151125
  Serious: Yes (Death, Hospitalization, Other)
  Sender: FDA-Public Use
  Company Number: GB-009507513-1507GBR010160

PATIENT
  Age: 73 Year
  Sex: Female
  Weight: 46.5 kg

DRUGS (10)
  1. VIEKIRAX [Suspect]
     Active Substance: OMBITASVIR\PARITAPREVIR\RITONAVIR
     Indication: HEPATITIS C
     Dosage: 12.5MG OMBITASVIR, 75MG PARATAPREVIR AND 50MG RITONAVIR. IN THE MORNING.
     Route: 048
     Dates: start: 20150413
  2. DIGOXIN. [Concomitant]
     Active Substance: DIGOXIN
     Dosage: 125 (UNITS NOT PROVIDED)
  3. PREGABALIN. [Concomitant]
     Active Substance: PREGABALIN
  4. RIBAVIRIN. [Suspect]
     Active Substance: RIBAVIRIN
     Indication: CHRONIC HEPATITIS C
     Dosage: 400 MG, BID
     Route: 048
     Dates: start: 20150413
  5. EXVIERA [Suspect]
     Active Substance: DASABUVIR
     Indication: HEPATITIS C
     Dosage: 250 MG, BID
     Route: 048
     Dates: start: 20150413
  6. OMEPRAZOLE. [Concomitant]
     Active Substance: OMEPRAZOLE
  7. ALENDRONIC ACID [Concomitant]
     Active Substance: ALENDRONIC ACID
  8. BETAHISTINE [Concomitant]
     Active Substance: BETAHISTINE
  9. FENTANYL. [Concomitant]
     Active Substance: FENTANYL
     Dosage: 12MCG PATCH - REDUCED FROM 25MCG DUE TO RISK OF DRUG-DRUG INTERACTION.
  10. FLUOXETINE [Concomitant]
     Active Substance: FLUOXETINE\FLUOXETINE HYDROCHLORIDE

REACTIONS (3)
  - Pneumonia [Fatal]
  - Lethargy [Not Recovered/Not Resolved]
  - Malaise [Not Recovered/Not Resolved]

NARRATIVE: CASE EVENT DATE: 20150621
